FAERS Safety Report 8780925 (Version 2)
Quarter: 2013Q2

REPORT INFORMATION
  Report Type: Spontaneous
  Country: CA (occurrence: CA)
  Receive Date: 20120913
  Receipt Date: 20130513
  Transmission Date: 20140414
  Serious: Yes (Other)
  Sender: FDA-Public Use
  Company Number: CA-PFIZER INC-2012206101

PATIENT
  Age: 76 Year
  Sex: Female

DRUGS (17)
  1. NORVASC [Suspect]
     Indication: BLOOD PRESSURE ABNORMAL
     Dosage: 10 MG, 1X/DAY
     Route: 048
  2. TYLENOL W/CODEINE NO. 3 [Concomitant]
     Indication: PAIN
     Dosage: UNK
     Dates: start: 2009
  3. PENNSAID [Concomitant]
     Indication: MUSCLE SPASMS
     Dosage: UNK, DEPENDING ON CRAMPS
     Dates: start: 2007
  4. VENTOLIN [Concomitant]
     Indication: ASTHMA
     Dosage: UNK
  5. NITROGLYCERIN SPRAY [Concomitant]
     Dosage: UNK, NOT USED LATELY
     Route: 048
  6. NITROLINGUAL [Concomitant]
  7. FOLIC ACID [Concomitant]
     Dosage: 1 MG, DAILY
     Route: 048
     Dates: start: 2000
  8. BABY ASPIRIN [Concomitant]
     Indication: PROPHYLAXIS
     Dosage: 81 MG, DAILY
     Route: 048
     Dates: start: 2007
  9. VITAMIN D [Concomitant]
     Indication: MULTIPLE SCLEROSIS
     Dosage: 1000 MG, 1X/DAY
     Route: 048
     Dates: start: 2000
  10. COVERSYL [Concomitant]
     Indication: ANGINA PECTORIS
     Dosage: 4 MG, UNK
     Route: 048
  11. VITAMIN B12 [Concomitant]
     Dosage: 1 DF, 1X/DAY
     Route: 048
  12. COUMADIN [Concomitant]
     Indication: CARDIAC DISORDER
     Dosage: 5 MG, 1X/DAY
     Route: 048
  13. HYDROCHLOROTHIAZID [Concomitant]
     Indication: DIURETIC THERAPY
     Dosage: 25 MG, UNK
     Route: 048
  14. VITAMIN C [Concomitant]
     Indication: MULTIPLE SCLEROSIS
     Dosage: 500 MG, 2X/DAY (MORNING AND EVENING)
     Route: 048
  15. GLUMETZA [Concomitant]
     Dosage: 1/2 TABLET 500 MG, 2X/DAY (MORNING AND EVENING)
     Route: 048
  16. LEUMUR INSULIN [Concomitant]
     Dosage: 28 IU, 1X/DAY
  17. LIPITOR [Concomitant]
     Indication: BLOOD CHOLESTEROL INCREASED
     Dosage: 10 MG, 1X/DAY
     Route: 048

REACTIONS (3)
  - Urinary tract infection [Unknown]
  - Cardiac failure congestive [Unknown]
  - Oedema peripheral [Not Recovered/Not Resolved]
